FAERS Safety Report 11029616 (Version 1)
Quarter: 2015Q2

REPORT INFORMATION
  Report Type: Spontaneous
  Country: US (occurrence: None)
  Receive Date: 20150413
  Receipt Date: 20150413
  Transmission Date: 20150821
  Serious: Yes (Other)
  Sender: FDA-Public Use
  Company Number: None

PATIENT
  Age: 54 Year
  Sex: Male
  Weight: 97.52 kg

DRUGS (8)
  1. IBUPROFEN. [Concomitant]
     Active Substance: IBUPROFEN
  2. LIALDA [Concomitant]
     Active Substance: MESALAMINE
  3. CARVEDILOL. [Concomitant]
     Active Substance: CARVEDILOL
  4. AMLODIPINE [Concomitant]
     Active Substance: AMLODIPINE BESYLATE
  5. PREDNISON [Suspect]
     Active Substance: PREDNISONE
     Indication: COLITIS ULCERATIVE
     Dosage: VARIED, IV AND 50 MG PER DAY TWICE DAILY
     Route: 048
     Dates: start: 20120615, end: 20120831
  6. ASPIRING [Concomitant]
     Active Substance: ASPIRIN
  7. LEVAQUIN [Suspect]
     Active Substance: LEVOFLOXACIN
     Indication: SINUSITIS
     Dosage: 2 PILLS TWICE DAILY
     Route: 048
     Dates: start: 201103, end: 201204
  8. TYLENOL [Concomitant]
     Active Substance: ACETAMINOPHEN

REACTIONS (9)
  - Nuclear magnetic resonance imaging abnormal [None]
  - Tendon rupture [None]
  - Arthralgia [None]
  - Surgical failure [None]
  - Colitis ulcerative [None]
  - Cyst [None]
  - Irritable bowel syndrome [None]
  - Arthritis [None]
  - Bone deformity [None]

NARRATIVE: CASE EVENT DATE: 20150324
